FAERS Safety Report 7494824-4 (Version None)
Quarter: 2011Q2

REPORT INFORMATION
  Report Type: 
  Country: None (occurrence: None)
  Receive Date: 20110520
  Receipt Date: 20110513
  Transmission Date: 20111010
  Serious: Yes (Other)
  Sender: FDA-Public Use
  Company Number: B0684507A

PATIENT
  Sex: Male
  Weight: 89 kg

DRUGS (13)
  1. LAMICTAL [Suspect]
     Dosage: 250MG PER DAY
     Route: 048
     Dates: start: 20100831, end: 20100908
  2. TEGRETOL [Concomitant]
     Indication: COMPLEX PARTIAL SEIZURES
     Dosage: 400MG PER DAY
     Route: 048
  3. LAMICTAL [Suspect]
     Dosage: 225MG PER DAY
     Route: 048
     Dates: start: 20100909, end: 20100924
  4. ZONISAMIDE [Concomitant]
     Indication: COMPLEX PARTIAL SEIZURES
     Dosage: 600MG PER DAY
     Route: 048
  5. LAMICTAL [Suspect]
     Dosage: 200MG PER DAY
     Route: 048
     Dates: start: 20100730, end: 20100830
  6. SELENICA R [Concomitant]
     Indication: COMPLEX PARTIAL SEIZURES
     Dosage: 800MG PER DAY
     Route: 048
     Dates: start: 20100909
  7. RENIVACE [Concomitant]
     Route: 048
  8. TOPIRAMATE [Concomitant]
     Indication: COMPLEX PARTIAL SEIZURES
     Dosage: 200MG PER DAY
     Route: 048
     Dates: start: 20100528, end: 20100611
  9. LAMICTAL [Suspect]
     Dosage: 150MG PER DAY
     Route: 048
     Dates: start: 20100625, end: 20100729
  10. LAMICTAL [Suspect]
     Dosage: 100MG PER DAY
     Route: 048
     Dates: start: 20100611, end: 20100624
  11. ALLOZYM [Concomitant]
     Route: 048
  12. LAMICTAL [Suspect]
     Indication: COMPLEX PARTIAL SEIZURES
     Dosage: 50MG PER DAY
     Route: 048
     Dates: start: 20100528, end: 20100610
  13. TOPIRAMATE [Concomitant]
     Dosage: 100MG PER DAY
     Route: 048
     Dates: start: 20100611, end: 20100625

REACTIONS (4)
  - AUTOMATISM [None]
  - CONVULSION [None]
  - HEADACHE [None]
  - VOMITING [None]
